FAERS Safety Report 19671576 (Version 1)
Quarter: 2021Q3

REPORT INFORMATION
  Report Type: Other
  Country: US (occurrence: US)
  Receive Date: 20210806
  Receipt Date: 20210806
  Transmission Date: 20211014
  Serious: Yes (Other)
  Sender: FDA-Public Use
  Company Number: US-APOTEX-2021AP031008

PATIENT
  Age: 43 Year
  Sex: Male

DRUGS (2)
  1. ZANTAC [Suspect]
     Active Substance: RANITIDINE HYDROCHLORIDE
     Indication: DYSPEPSIA
     Dosage: OTHER (2 TABS 2XDAILY  ? STARTED WITH ZANTAC ? LATER SWITCHED OVER DUE TO INSURANCE TO RANITIDINE)
     Route: 065
     Dates: start: 199601, end: 201901
  2. RANITIDINE TABLETS [Suspect]
     Active Substance: RANITIDINE HYDROCHLORIDE
     Indication: DYSPEPSIA
     Dosage: OTHER (2 TABLETS 2X DAILY ? BEGAN RANITIDINE WHEN INSURANCE REQUIRED SWITCH FROM ZANTAC)
     Route: 065
     Dates: start: 199601, end: 201901

REACTIONS (2)
  - Colorectal cancer [Not Recovered/Not Resolved]
  - Skin cancer [Unknown]

NARRATIVE: CASE EVENT DATE: 19930505
